FAERS Safety Report 11856244 (Version 1)
Quarter: 2015Q4

REPORT INFORMATION
  Report Type: Spontaneous
  Country: US (occurrence: US)
  Receive Date: 20151221
  Receipt Date: 20151221
  Transmission Date: 20160305
  Serious: No
  Sender: FDA-Public Use
  Company Number: US-BAYER-2015-492135

PATIENT
  Age: 66 Year
  Sex: Male
  Weight: 69.39 kg

DRUGS (1)
  1. ALEVE PM [Suspect]
     Active Substance: DIPHENHYDRAMINE HYDROCHLORIDE\NAPROXEN SODIUM
     Indication: MUSCLE STRAIN
     Dosage: 1 DF, PRN
     Route: 048
     Dates: start: 20151210, end: 201512

REACTIONS (1)
  - Prostatic disorder [None]

NARRATIVE: CASE EVENT DATE: 20151210
